FAERS Safety Report 7157177-7 (Version None)
Quarter: 2010Q4

REPORT INFORMATION
  Report Type: 
  Country: None (occurrence: None)
  Receive Date: 20101214
  Receipt Date: 20091221
  Transmission Date: 20110411
  Serious: No
  Sender: FDA-Public Use
  Company Number: US-ASTRAZENECA-2009SE33235

PATIENT
  Age: 70 Year
  Sex: Female

DRUGS (2)
  1. CRESTOR [Suspect]
     Route: 048
     Dates: start: 20091101, end: 20091218
  2. UNSPECIFIED ANTIHYPERTENSIVE MEDICATION [Concomitant]

REACTIONS (5)
  - ABDOMINAL DISCOMFORT [None]
  - DIZZINESS [None]
  - HYPERGLYCAEMIA [None]
  - ILL-DEFINED DISORDER [None]
  - MALAISE [None]
